FAERS Safety Report 17085137 (Version 1)
Quarter: 2019Q4

REPORT INFORMATION
  Report Type: Spontaneous
  Country: US (occurrence: US)
  Receive Date: 20191030
  Receipt Date: 20191030
  Transmission Date: 20200122
  Serious: Yes (Hospitalization)
  Sender: FDA-Public Use
  Company Number: None

PATIENT
  Age: 59 Year
  Sex: Female

DRUGS (1)
  1. OCREVUS [Suspect]
     Active Substance: OCRELIZUMAB
     Indication: MULTIPLE SCLEROSIS
     Dosage: INTRAVENOUS ON DAY 1 AND 300MG ON DAY 15, THEN 600MG EVERY SIX MONTHS THEREAFTER
     Route: 042
     Dates: start: 20190510

REACTIONS (4)
  - Infusion related reaction [None]
  - Headache [None]
  - Fatigue [None]
  - Thrombosis [None]
